FAERS Safety Report 11983063 (Version 5)
Quarter: 2021Q4

REPORT INFORMATION
  Report Type: Spontaneous
  Country: US (occurrence: US)
  Receive Date: 20160201
  Receipt Date: 20211019
  Transmission Date: 20220303
  Serious: Yes (Other)
  Sender: FDA-Public Use
  Company Number: US-PFIZER INC-2016043245

PATIENT
  Age: 46 Year
  Sex: Female

DRUGS (5)
  1. IBRANCE [Suspect]
     Active Substance: PALBOCICLIB
     Indication: Breast cancer metastatic
     Dosage: 125 MG, DAILY
     Dates: start: 20150813
  2. IBRANCE [Suspect]
     Active Substance: PALBOCICLIB
     Dosage: 100 MG, DAILY
  3. IBRANCE [Suspect]
     Active Substance: PALBOCICLIB
     Dosage: 75 MG, CYCLIC (2 ON, 2 OFF)
     Dates: start: 201510
  4. IBRANCE [Suspect]
     Active Substance: PALBOCICLIB
     Dosage: UNK
     Dates: start: 20150813
  5. LETROZOLE [Concomitant]
     Active Substance: LETROZOLE
     Indication: Breast cancer metastatic
     Dosage: UNK
     Dates: start: 20150813

REACTIONS (17)
  - Neutropenia [Recovering/Resolving]
  - Syncope [Unknown]
  - Loss of consciousness [Unknown]
  - Injury [Unknown]
  - Alopecia [Not Recovered/Not Resolved]
  - White blood cell count decreased [Unknown]
  - Cough [Recovering/Resolving]
  - Illness [Unknown]
  - Fatigue [Unknown]
  - Localised infection [Not Recovered/Not Resolved]
  - White blood cell count abnormal [Recovering/Resolving]
  - Full blood count abnormal [Unknown]
  - Malaise [Unknown]
  - Gastrointestinal disorder [Recovering/Resolving]
  - Hypersomnia [Unknown]
  - Insomnia [Unknown]
  - Bone pain [Unknown]

NARRATIVE: CASE EVENT DATE: 20150801
